FAERS Safety Report 7395123-1 (Version None)
Quarter: 2011Q2

REPORT INFORMATION
  Report Type: 
  Country: None (occurrence: None)
  Receive Date: 20110405
  Receipt Date: 20110322
  Transmission Date: 20111010
  Serious: Yes (Other)
  Sender: FDA-Public Use
  Company Number: PHEH2010US03412

PATIENT
  Sex: Male

DRUGS (2)
  1. AREDIA [Suspect]
  2. ZOMETA [Suspect]

REACTIONS (6)
  - INJURY [None]
  - DISABILITY [None]
  - ANXIETY [None]
  - OSTEONECROSIS OF JAW [None]
  - PAIN [None]
  - ANHEDONIA [None]
